FAERS Safety Report 12346843 (Version 1)
Quarter: 2016Q2

REPORT INFORMATION
  Report Type: Report from Study
  Country: US (occurrence: US)
  Receive Date: 20160509
  Receipt Date: 20160509
  Transmission Date: 20160815
  Serious: No
  Sender: FDA-Public Use
  Company Number: PHEH2014US005438

PATIENT
  Age: 72 Year
  Sex: Male

DRUGS (2)
  1. GLEEVEC [Suspect]
     Active Substance: IMATINIB MESYLATE
     Indication: NEOPLASM MALIGNANT
     Dosage: 400 MG, QD
     Route: 048
     Dates: start: 201308
  2. GLEEVEC [Suspect]
     Active Substance: IMATINIB MESYLATE
     Indication: GASTROINTESTINAL STROMAL TUMOUR

REACTIONS (10)
  - Fluid retention [Unknown]
  - Conjunctival haemorrhage [Unknown]
  - Anaemia [Not Recovered/Not Resolved]
  - Iron deficiency anaemia [Unknown]
  - Eye swelling [Unknown]
  - Periorbital oedema [Recovering/Resolving]
  - Lacrimation increased [Unknown]
  - Oedema peripheral [Recovering/Resolving]
  - Rash [Unknown]
  - Glaucoma [Unknown]

NARRATIVE: CASE EVENT DATE: 201404
